FAERS Safety Report 7953407-X (Version None)
Quarter: 2011Q4

REPORT INFORMATION
  Report Type: 
  Country: None (occurrence: None)
  Receive Date: 20111202
  Receipt Date: 20111128
  Transmission Date: 20120403
  Serious: Yes (Hospitalization, Other)
  Sender: FDA-Public Use
  Company Number: US-AMGEN-USASP2011062762

PATIENT
  Sex: Female

DRUGS (1)
  1. ARANESP [Suspect]
     Indication: RENAL FAILURE CHRONIC
     Dosage: UNK
     Dates: start: 20070101

REACTIONS (4)
  - BACK PAIN [None]
  - PALPITATIONS [None]
  - BONE PAIN [None]
  - GASTRIC HAEMORRHAGE [None]
